FAERS Safety Report 5266822-2 (Version None)
Quarter: 2007Q1

REPORT INFORMATION
  Report Type: 
  Country: None (occurrence: None)
  Receive Date: 20061213
  Receipt Date: 20021122
  Transmission Date: 20070707
  Serious: No
  Sender: FDA-Public Use
  Company Number: 2002UW16072

PATIENT
  Sex: Female

DRUGS (2)
  1. NOLVADEX [Suspect]
     Indication: BREAST CANCER
     Dosage: 20 MG PO
     Route: 048
     Dates: start: 20010501
  2. FLAX SEED [Concomitant]

REACTIONS (3)
  - DISEASE PROGRESSION [None]
  - FLUSHING [None]
  - NIGHT SWEATS [None]
